FAERS Safety Report 7588005-3 (Version None)
Quarter: 2011Q3

REPORT INFORMATION
  Report Type: 
  Country: None (occurrence: None)
  Receive Date: 20110705
  Receipt Date: 20110630
  Transmission Date: 20111222
  Serious: No
  Sender: FDA-Public Use
  Company Number: US-PFIZER INC-2011146978

PATIENT

DRUGS (2)
  1. EFFEXOR XR [Suspect]
     Dosage: 75 MG
  2. EFFEXOR XR [Suspect]
     Dosage: 37.5 MG

REACTIONS (2)
  - HEADACHE [None]
  - PARAESTHESIA [None]
